FAERS Safety Report 17075995 (Version 1)
Quarter: 2019Q4

REPORT INFORMATION
  Report Type: Report from Study
  Country: US (occurrence: US)
  Receive Date: 20191126
  Receipt Date: 20191126
  Transmission Date: 20200122
  Serious: Yes (Other)
  Sender: FDA-Public Use
  Company Number: US-TAIHO ONCOLOGY  INC-EU-2019-03897

PATIENT
  Age: 76 Year
  Sex: Female

DRUGS (6)
  1. LISINOPRIL. [Concomitant]
     Active Substance: LISINOPRIL
     Dosage: NI
  2. LORAZEPAM. [Concomitant]
     Active Substance: LORAZEPAM
     Dosage: NI
  3. HYDROCO/APAP [Concomitant]
     Active Substance: ACETAMINOPHEN\HYDROCODONE
     Dosage: NI
  4. LONSURF [Suspect]
     Active Substance: TIPIRACIL HYDROCHLORIDE\TRIFLURIDINE
     Indication: RECTAL CANCER
     Dosage: CURRENT CYCLE UNKNOWN
     Route: 048
     Dates: start: 20190328
  5. ONDANSETRON [Concomitant]
     Active Substance: ONDANSETRON
     Dosage: NI
  6. AMLODIPINE [Concomitant]
     Active Substance: AMLODIPINE BESYLATE
     Dosage: NI

REACTIONS (2)
  - Product distribution issue [Unknown]
  - Transfusion [Not Recovered/Not Resolved]

NARRATIVE: CASE EVENT DATE: 2019
